FAERS Safety Report 4576941-1 (Version None)
Quarter: 2005Q1

REPORT INFORMATION
  Report Type: 
  Country: None (occurrence: None)
  Receive Date: 20050208
  Receipt Date: 20050124
  Transmission Date: 20050727
  Serious: Yes (Life-Threatening, Hospitalization)
  Sender: FDA-Public Use
  Company Number: 2004242988US

PATIENT
  Age: 85 Year
  Sex: Male
  Weight: 63.49 kg

DRUGS (16)
  1. CELECOXIB (CELECOXIB) [Suspect]
     Indication: PROSTATE CANCER
     Dosage: 800 MG (400 MG, 2 IN 1 D), ORAL
     Route: 048
     Dates: start: 20040908, end: 20041101
  2. DOCETAXEL (DOCETAXEL) [Suspect]
     Indication: ILL-DEFINED DISORDER
     Dosage: 57 MG (CYCLICAL), INTRAVENOUS
     Route: 042
     Dates: start: 20040908
  3. SENNA (SENNA) [Concomitant]
  4. MULTIVITAMINS (ASCORBIC ACID, ERGOCALCIFEROL, FOLIC ACID, NICOTINAMIDE [Concomitant]
  5. LISINOPRIL [Concomitant]
  6. SIMVASTATIN [Concomitant]
  7. FENTANYL [Concomitant]
  8. LACTULOSE [Concomitant]
  9. MEGACE [Concomitant]
  10. HYDROCHLOROTHIAZIDE [Concomitant]
  11. FUROSEMIDE [Concomitant]
  12. FINASTERIDE [Concomitant]
  13. ASCORBIC ACID [Concomitant]
  14. PROCHLORPERAZINE [Concomitant]
  15. DEXAMETHASONE [Concomitant]
  16. TERAZOSIN (TERAZOSIN) [Concomitant]

REACTIONS (10)
  - ABDOMINAL PAIN [None]
  - DEHYDRATION [None]
  - DIARRHOEA [None]
  - DIZZINESS [None]
  - HYPOTENSION [None]
  - NAUSEA [None]
  - ORAL INTAKE REDUCED [None]
  - RENAL FAILURE ACUTE [None]
  - URINARY TRACT INFECTION [None]
  - VOMITING [None]
